FAERS Safety Report 4607043-3 (Version None)
Quarter: 2005Q1

REPORT INFORMATION
  Report Type: 
  Country: None (occurrence: None)
  Receive Date: 20050310
  Receipt Date: 20050223
  Transmission Date: 20050727
  Serious: Yes (Hospitalization)
  Sender: FDA-Public Use
  Company Number: 2004BI000874

PATIENT
  Age: 44 Year
  Sex: Female
  Weight: 70.3075 kg

DRUGS (6)
  1. AVONEX [Suspect]
     Indication: MULTIPLE SCLEROSIS
     Dosage: 30 UG;QW; IM
     Route: 030
     Dates: start: 19971201, end: 20031101
  2. NEURONTIN [Concomitant]
  3. BACLOFEN [Concomitant]
  4. AMITRIPTYLINE [Concomitant]
  5. PROZAC [Concomitant]
  6. NOVANTORNE [Concomitant]

REACTIONS (9)
  - BENIGN SMALL INTESTINAL NEOPLASM [None]
  - CONDITION AGGRAVATED [None]
  - DYSPNOEA [None]
  - HAEMATOCHEZIA [None]
  - HAEMATOCRIT DECREASED [None]
  - MULTIPLE SCLEROSIS [None]
  - PAIN IN EXTREMITY [None]
  - POSTOPERATIVE INFECTION [None]
  - WOUND INFECTION [None]
